FAERS Safety Report 23553803 (Version 2)
Quarter: 2024Q1

REPORT INFORMATION
  Report Type: Report from Study
  Country: US (occurrence: US)
  Receive Date: 20240222
  Receipt Date: 20240329
  Transmission Date: 20240410
  Serious: Yes (Hospitalization, Other)
  Sender: FDA-Public Use
  Company Number: US-BAYER-2024A023639

PATIENT
  Age: 76 Year
  Sex: Male

DRUGS (2)
  1. STIVARGA [Suspect]
     Active Substance: REGORAFENIB
     Indication: Rectosigmoid cancer
     Dosage: 80 MG, QD  (THE FIRST 3 WEEKS )
  2. STIVARGA [Suspect]
     Active Substance: REGORAFENIB
     Indication: Rectosigmoid cancer
     Dosage: 160 MG, QD, FOR 21 DAYS, THEN 7 DAYS OFF
     Route: 048

REACTIONS (12)
  - Pneumonia [Unknown]
  - Cardiac disorder [Unknown]
  - Gait disturbance [Not Recovered/Not Resolved]
  - Erythema [Not Recovered/Not Resolved]
  - Arthralgia [Not Recovered/Not Resolved]
  - Pain in extremity [Not Recovered/Not Resolved]
  - Pain [Not Recovered/Not Resolved]
  - Fatigue [Not Recovered/Not Resolved]
  - Dysphonia [Not Recovered/Not Resolved]
  - Skin disorder [Unknown]
  - Skin ulcer [Not Recovered/Not Resolved]
  - Off label use [None]
